FAERS Safety Report 4889909-2 (Version None)
Quarter: 2006Q1

REPORT INFORMATION
  Report Type: 
  Country: None (occurrence: None)
  Receive Date: 20060124
  Receipt Date: 20050317
  Transmission Date: 20060701
  Serious: Yes (Hospitalization, Disabling)
  Sender: FDA-Public Use
  Company Number: US-MERCK-0503USA03416

PATIENT
  Age: 49 Year
  Sex: Male
  Weight: 96 kg

DRUGS (7)
  1. VIOXX [Suspect]
     Indication: ARTHRITIS
     Route: 048
     Dates: end: 20010101
  2. NORVASC [Concomitant]
     Route: 065
  3. CARDURA [Concomitant]
     Route: 065
  4. NOVOLIN [Concomitant]
     Route: 065
  5. LOTENSIN [Concomitant]
     Route: 065
  6. PRAVACHOL [Concomitant]
     Route: 065
  7. BUMEX [Concomitant]
     Route: 065

REACTIONS (30)
  - ABDOMINAL PAIN [None]
  - ABSCESS [None]
  - ANAEMIA [None]
  - ARTHRALGIA [None]
  - ARTHROPATHY [None]
  - ASTHENIA [None]
  - BACK PAIN [None]
  - BLINDNESS [None]
  - CARDIAC MURMUR [None]
  - CEREBROVASCULAR ACCIDENT [None]
  - DIABETIC GASTROENTEROPATHY [None]
  - DIABETIC RETINOPATHY [None]
  - DIALYSIS [None]
  - DIZZINESS [None]
  - DYSARTHRIA [None]
  - DYSPNOEA [None]
  - GASTRITIS [None]
  - HEADACHE [None]
  - HIATUS HERNIA [None]
  - HYPOGLYCAEMIA [None]
  - IMPAIRED GASTRIC EMPTYING [None]
  - INGUINAL MASS [None]
  - INJURY [None]
  - INTESTINAL FUNCTIONAL DISORDER [None]
  - NAUSEA [None]
  - OESOPHAGITIS [None]
  - RENAL DISORDER [None]
  - RENAL FAILURE [None]
  - SEXUAL DYSFUNCTION [None]
  - VOMITING [None]
